FAERS Safety Report 6094699-4 (Version None)
Quarter: 2009Q1

REPORT INFORMATION
  Report Type: 
  Country: None (occurrence: None)
  Receive Date: 20090224
  Receipt Date: 20090212
  Transmission Date: 20090719
  Serious: Yes (Hospitalization)
  Sender: FDA-Public Use
  Company Number: US025464

PATIENT

DRUGS (2)
  1. FENTANYL [Suspect]
     Dosage: BUCCAL
     Route: 002
  2. MORPHINE [Suspect]

REACTIONS (3)
  - DRUG EFFECT INCREASED [None]
  - POST PROCEDURAL COMPLICATION [None]
  - RESPIRATORY ACIDOSIS [None]
